FAERS Safety Report 4821865-5 (Version None)
Quarter: 2005Q4

REPORT INFORMATION
  Report Type: 
  Country: None (occurrence: None)
  Receive Date: 20051107
  Receipt Date: 20050207
  Transmission Date: 20060501
  Serious: Yes (Other)
  Sender: FDA-Public Use
  Company Number: PHEH2005US01796

PATIENT
  Age: 66 Year
  Sex: Female

DRUGS (4)
  1. ZOLEDRONIC ACID [Suspect]
     Indication: METASTASES TO BONE
     Route: 065
  2. TAMOXIFEN [Concomitant]
  3. TRASTUZUMAB [Concomitant]
  4. AREDIA [Suspect]
     Indication: METASTASES TO BONE
     Route: 042

REACTIONS (3)
  - BONE TRIMMING [None]
  - LOCALISED INFECTION [None]
  - OSTEONECROSIS [None]
